FAERS Safety Report 25219416 (Version 2)
Quarter: 2025Q2

REPORT INFORMATION
  Report Type: Spontaneous
  Country: CO (occurrence: CO)
  Receive Date: 20250421
  Receipt Date: 20250428
  Transmission Date: 20250717
  Serious: Yes (Hospitalization, Other)
  Sender: BAYER HEALTHCARE PHARMACEUTICALS INC.
  Company Number: CO-BAYER-2025A047057

PATIENT
  Age: 57 Year
  Sex: Male

DRUGS (2)
  1. ADEMPAS [Suspect]
     Active Substance: RIOCIGUAT
     Indication: Pulmonary arterial hypertension
     Dosage: 2.5 MG, Q8HR
     Route: 048
     Dates: start: 20240410, end: 20250318
  2. SELEXIPAG [Concomitant]
     Active Substance: SELEXIPAG

REACTIONS (2)
  - Haematemesis [Recovered/Resolved]
  - Gastric ulcer [Not Recovered/Not Resolved]

NARRATIVE: CASE EVENT DATE: 20250325
